FAERS Safety Report 11662002 (Version 2)
Quarter: 2015Q4

REPORT INFORMATION
  Report Type: Spontaneous
  Country: LT (occurrence: LT)
  Receive Date: 20151026
  Receipt Date: 20151203
  Transmission Date: 20160304
  Serious: Yes (Other)
  Sender: FDA-Public Use
  Company Number: LT-009507513-1510LTU007848

PATIENT

DRUGS (9)
  1. NEVIRAPINE. [Concomitant]
     Active Substance: NEVIRAPINE
  2. INDINAVIR SULFATE [Suspect]
     Active Substance: INDINAVIR SULFATE
     Indication: HIV INFECTION
     Dosage: UNKNOWN
     Route: 065
  3. DIDANOSINE. [Concomitant]
     Active Substance: DIDANOSINE
  4. EMTRICITABINE [Concomitant]
     Active Substance: EMTRICITABINE
  5. RILPIVIRINE [Concomitant]
     Active Substance: RILPIVIRINE
  6. EFAVIRENZ [Suspect]
     Active Substance: EFAVIRENZ
     Indication: HIV INFECTION
     Dosage: UNKNOWN
     Route: 065
  7. ETRAVIRINE [Concomitant]
     Active Substance: ETRAVIRINE
  8. LAMIVUDINE. [Concomitant]
     Active Substance: LAMIVUDINE
  9. ABACAVIR. [Concomitant]
     Active Substance: ABACAVIR

REACTIONS (1)
  - Drug resistance [Unknown]
